FAERS Safety Report 7432504-1 (Version None)
Quarter: 2011Q2

REPORT INFORMATION
  Report Type: 
  Country: None (occurrence: None)
  Receive Date: 20110422
  Receipt Date: 20110412
  Transmission Date: 20111010
  Serious: Yes (Hospitalization)
  Sender: FDA-Public Use
  Company Number: KR-ELI_LILLY_AND_COMPANY-KR201104003984

PATIENT
  Sex: Female
  Weight: 50.32 kg

DRUGS (4)
  1. DEXAMETHASONE [Concomitant]
     Indication: SUPPLEMENTATION THERAPY
     Dosage: 8 MG, UNKNOWN
     Route: 048
     Dates: start: 20070710
  2. FOLIC ACID [Concomitant]
     Indication: SUPPLEMENTATION THERAPY
     Dosage: 1 MG, UNKNOWN
     Route: 048
     Dates: start: 20070704
  3. VITAMIN B-12 [Concomitant]
     Indication: SUPPLEMENTATION THERAPY
     Dosage: 1 MG, UNKNOWN
     Route: 030
     Dates: start: 20070704, end: 20070822
  4. PEMETREXED [Suspect]
     Indication: NON-SMALL CELL LUNG CANCER
     Dosage: 700 MG/M2, UNKNOWN
     Dates: start: 20070711

REACTIONS (3)
  - DIZZINESS [None]
  - HYPOPHAGIA [None]
  - THROMBOCYTOPENIA [None]
